FAERS Safety Report 24918227 (Version 2)
Quarter: 2025Q2

REPORT INFORMATION
  Report Type: Report from Study
  Country: US (occurrence: US)
  Receive Date: 20250203
  Receipt Date: 20250410
  Transmission Date: 20250716
  Serious: Yes (Hospitalization, Other)
  Sender: OTSUKA
  Company Number: US-OTSUKA-2025_002444

PATIENT
  Age: 42 Year
  Sex: Male

DRUGS (2)
  1. TOLVAPTAN [Suspect]
     Active Substance: TOLVAPTAN
     Indication: Congenital cystic kidney disease
     Dosage: 60 MG, QD (IN THE MORNING UPON WAKING)
     Route: 048
  2. TOLVAPTAN [Suspect]
     Active Substance: TOLVAPTAN
     Dosage: 30 MG, QD (8 H LATER)
     Route: 048

REACTIONS (2)
  - Cardiac operation [Unknown]
  - Product dose omission issue [Unknown]

NARRATIVE: CASE EVENT DATE: 20250116
